FAERS Safety Report 5385216-2 (Version None)
Quarter: 2007Q3

REPORT INFORMATION
  Report Type: 
  Country: None (occurrence: None)
  Receive Date: 20070706
  Receipt Date: 20070706
  Transmission Date: 20080115
  Serious: Yes (Hospitalization)
  Sender: FDA-Public Use
  Company Number: None

PATIENT
  Age: 51 Year
  Sex: Male

DRUGS (1)
  1. PHENYTOIN [Suspect]
     Indication: CONVULSION
     Dosage: 300MG TID PO
     Route: 048
     Dates: start: 20070308, end: 20070620

REACTIONS (3)
  - BALANCE DISORDER [None]
  - DRUG LEVEL INCREASED [None]
  - FALL [None]
